FAERS Safety Report 24407579 (Version 1)
Quarter: 2024Q4

REPORT INFORMATION
  Report Type: Spontaneous
  Country: NL (occurrence: NL)
  Receive Date: 20241007
  Receipt Date: 20241007
  Transmission Date: 20250115
  Serious: Yes (Hospitalization)
  Sender: ALEXION PHARMACEUTICALS
  Company Number: None

PATIENT
  Age: 76 Year
  Weight: 85 kg

DRUGS (15)
  1. DAPAGLIFLOZIN [Suspect]
     Active Substance: DAPAGLIFLOZIN
     Indication: Cardiac failure chronic
     Dosage: 1X PER DAG 1 TABLET
  2. LIDOCAINE [Concomitant]
     Active Substance: LIDOCAINE
     Dosage: INJECTIEVLOEISTOF, 20 MG/ML (MILLIGRAM PER MILLILITER)
  3. HYDROQUININE [Concomitant]
     Dosage: TABLET, 100 MG (MILLIGRAM)
  4. ISOSORBIDE MONONITRATE [Concomitant]
     Active Substance: ISOSORBIDE MONONITRATE
     Dosage: CONTROLLED RELEASE TABLET, 60 MG (MILLIGRAM)
  5. Triamcinolon [Concomitant]
     Dosage: SUSPENSION FOR INJECTION, 40 MG/ML (MILLIGRAMS PER MILLILITER)
  6. OMEPRAZOLE [Concomitant]
     Active Substance: OMEPRAZOLE
     Dosage: GASTRO-RESISTANT CAPSULE, 20 MG (MILLIGRAMS)
  7. ROSUVASTATIN [Concomitant]
     Active Substance: ROSUVASTATIN
     Dosage: TABLET, 5 MG (MILLIGRAM)
  8. FORMOTEROL [Concomitant]
     Active Substance: FORMOTEROL
     Dosage: INHALATION POWDER, 12 ?G/DOSE (MICROGRAMS PER DOSE)
  9. VALSARTAN [Concomitant]
     Active Substance: VALSARTAN
     Dosage: OMHULDE TABLET, 40 MG (MILLIGRAM)
  10. BETAHISTINE [Concomitant]
     Active Substance: BETAHISTINE
     Dosage: TABLET, 8 MG (MILLIGRAM)
  11. LEVOTHYROXINE [Concomitant]
     Active Substance: LEVOTHYROXINE
     Dosage: TABLET, 100 ?G (MICROGRAM)
  12. GABAPENTIN [Concomitant]
     Active Substance: GABAPENTIN
     Dosage: CAPSULE, 300 MG (MILLIGRAM)
  13. ACETAMINOPHEN [Concomitant]
     Active Substance: ACETAMINOPHEN
     Dosage: TABLET, 1000 MG (MILLIGRAM)
  14. ASPIRIN [Concomitant]
     Active Substance: ASPIRIN
     Dosage: TABLET, 80 MG (MILLIGRAM)
  15. TRAMADOL [Concomitant]
     Active Substance: TRAMADOL
     Dosage: CAPSULE, 50 MG (MILLIGRAM)

REACTIONS (2)
  - Cyanosis [Not Recovered/Not Resolved]
  - Paraesthesia oral [Not Recovered/Not Resolved]
